FAERS Safety Report 9954998 (Version 6)
Quarter: 2015Q2

REPORT INFORMATION
  Report Type: Report from Study
  Country: US (occurrence: US)
  Receive Date: 20140304
  Receipt Date: 20150429
  Transmission Date: 20150821
  Serious: Yes (Hospitalization, Other)
  Sender: FDA-Public Use
  Company Number: US-SANOFI-AVENTIS-2013SA019785

PATIENT
  Age: 75 Year
  Sex: Female
  Weight: 81.6 kg

DRUGS (1)
  1. AUBAGIO [Suspect]
     Active Substance: TERIFLUNOMIDE
     Indication: MULTIPLE SCLEROSIS
     Route: 048
     Dates: start: 20121112

REACTIONS (12)
  - Anxiety [Unknown]
  - Impaired healing [Unknown]
  - Unevaluable event [Unknown]
  - Asthenia [Recovering/Resolving]
  - Diarrhoea [Unknown]
  - Cystitis [Unknown]
  - Pneumonia [Unknown]
  - Elbow operation [Unknown]
  - Mouth ulceration [Recovering/Resolving]
  - Nasopharyngitis [Not Recovered/Not Resolved]
  - Mouth swelling [Recovering/Resolving]
  - Dysstasia [Recovered/Resolved]

NARRATIVE: CASE EVENT DATE: 2013
